FAERS Safety Report 14078420 (Version 1)
Quarter: 2017Q4

REPORT INFORMATION
  Report Type: Spontaneous
  Country: US (occurrence: US)
  Receive Date: 20171011
  Receipt Date: 20171011
  Transmission Date: 20180321
  Serious: Yes (Death)
  Sender: FDA-Public Use
  Company Number: None

PATIENT
  Age: 84 Year
  Sex: Male
  Weight: 78.75 kg

DRUGS (1)
  1. KRYSTEXXA [Suspect]
     Active Substance: PEGLOTICASE
     Indication: GOUT
     Dosage: ?          OTHER FREQUENCY:EVERY TWO WEEKS;?
     Route: 042
     Dates: start: 20170315, end: 20170502

REACTIONS (3)
  - Fatigue [None]
  - Asthenia [None]
  - Feeling abnormal [None]

NARRATIVE: CASE EVENT DATE: 20170425
